FAERS Safety Report 9687987 (Version 3)
Quarter: 2013Q4

REPORT INFORMATION
  Report Type: Report from Study
  Country: FR (occurrence: FR)
  Receive Date: 20131114
  Receipt Date: 20131209
  Transmission Date: 20140711
  Serious: Yes (Death, Other)
  Sender: FDA-Public Use
  Company Number: PHHY2013FR129592

PATIENT
  Age: 51 Year
  Sex: Male
  Weight: 75 kg

DRUGS (10)
  1. MYCOPHENOLIC ACID [Suspect]
     Indication: RENAL AND PANCREAS TRANSPLANT
     Dosage: 720 MG, QD
     Dates: start: 20130710
  2. MYCOPHENOLIC ACID [Suspect]
     Indication: RENAL IMPAIRMENT
     Dosage: 1040 MG, UNK
  3. SANDIMMUN [Concomitant]
     Indication: IMMUNOSUPPRESSION
     Dosage: 150 MG, QD
  4. DOBUTAMINE [Concomitant]
     Indication: CARDIOVASCULAR EVENT PROPHYLAXIS
     Dosage: 5 MG/KG/MN
     Dates: start: 20131015
  5. HEPARIN [Concomitant]
     Indication: CARDIOVASCULAR EVENT PROPHYLAXIS
     Dosage: UNK UKN, UNK
     Dates: start: 20131015
  6. BRILIQUE [Concomitant]
     Indication: CARDIOVASCULAR EVENT PROPHYLAXIS
     Dosage: UNK UKN, UNK
     Dates: start: 20131015
  7. KARDEGIC [Concomitant]
     Indication: CARDIOVASCULAR EVENT PROPHYLAXIS
     Dosage: UNK UKN, UNK
     Dates: start: 20131015
  8. NORADRENALINE [Concomitant]
     Indication: CARDIOVASCULAR EVENT PROPHYLAXIS
     Dosage: UNK UKN, UNK
     Dates: start: 20131015
  9. CORDARONE [Concomitant]
     Indication: CARDIOVASCULAR EVENT PROPHYLAXIS
     Dosage: UNK UKN, UNK
     Dates: start: 20131017
  10. BREVIBLOC [Concomitant]
     Indication: CARDIOVASCULAR EVENT PROPHYLAXIS
     Dosage: UNK UKN, UNK
     Dates: start: 20131017

REACTIONS (14)
  - Drug withdrawal syndrome [Fatal]
  - Cerebrovascular accident [Fatal]
  - Cardiac arrest [Fatal]
  - Cardiac disorder [Unknown]
  - Coronary artery stenosis [Unknown]
  - Chest pain [Unknown]
  - Myocardial necrosis [Unknown]
  - Ventricular fibrillation [Unknown]
  - Pulmonary alveolar haemorrhage [Unknown]
  - Hypoxia [Unknown]
  - Multi-organ failure [Unknown]
  - Pneumonia [Unknown]
  - Serratia infection [Unknown]
  - Renal and pancreas transplant rejection [Unknown]
